FAERS Safety Report 13419719 (Version 1)
Quarter: 2017Q2

REPORT INFORMATION
  Report Type: Spontaneous
  Country: US (occurrence: US)
  Receive Date: 20170407
  Receipt Date: 20170407
  Transmission Date: 20170830
  Serious: No
  Sender: FDA-Public Use
  Company Number: US-PFIZER INC-2017146401

PATIENT
  Age: 17 Year
  Sex: Male
  Weight: 64 kg

DRUGS (1)
  1. ADVIL [Suspect]
     Active Substance: IBUPROFEN
     Indication: ARTHRALGIA
     Dosage: 400 MG, AS NEEDED
     Route: 048

REACTIONS (6)
  - Hypersensitivity [Unknown]
  - Lip swelling [Not Recovered/Not Resolved]
  - Rash erythematous [Recovered/Resolved]
  - Neoplasm [Recovered/Resolved]
  - Eye swelling [Not Recovered/Not Resolved]
  - Mouth swelling [Recovered/Resolved]

NARRATIVE: CASE EVENT DATE: 201701
